FAERS Safety Report 4994821-4 (Version None)
Quarter: 2006Q2

REPORT INFORMATION
  Report Type: 
  Country: None (occurrence: None)
  Receive Date: 20060508
  Receipt Date: 20060504
  Transmission Date: 20061013
  Serious: Yes (Hospitalization)
  Sender: FDA-Public Use
  Company Number: GB-SP-2006-01050

PATIENT
  Age: 71 Year
  Sex: Male

DRUGS (6)
  1. IMMUCYST [Suspect]
     Indication: BLADDER CANCER
     Route: 043
     Dates: start: 20060101
  2. BENDROFLUAZIDE [Concomitant]
     Route: 065
     Dates: start: 20030101
  3. IRBESARTAN [Concomitant]
     Route: 065
     Dates: start: 20030101
  4. SIMVASTATIN [Concomitant]
     Dates: start: 20030101
  5. OMEPRAZOLE [Concomitant]
     Dates: start: 20030101
  6. DOXAZOSIN [Concomitant]
     Dates: start: 20030101

REACTIONS (1)
  - ATRIAL FIBRILLATION [None]
